FAERS Safety Report 25338931 (Version 3)
Quarter: 2025Q2

REPORT INFORMATION
  Report Type: Report from Study
  Country: US (occurrence: US)
  Receive Date: 20250520
  Receipt Date: 20250616
  Transmission Date: 20250716
  Serious: Yes (Hospitalization, Other)
  Sender: ALEXION PHARMACEUTICALS
  Company Number: US-AstraZeneca-CH-00870974A

PATIENT

DRUGS (1)
  1. SOLIRIS [Suspect]
     Active Substance: ECULIZUMAB
     Indication: Myasthenia gravis

REACTIONS (6)
  - Sicca syndrome [Unknown]
  - Back pain [Unknown]
  - Staphylococcal bacteraemia [Unknown]
  - Dyspnoea [Unknown]
  - Asthenia [Unknown]
  - Eyelid ptosis [Unknown]
